FAERS Safety Report 15504994 (Version 2)
Quarter: 2018Q4

REPORT INFORMATION
  Report Type: Report from Study
  Country: US (occurrence: US)
  Receive Date: 20181016
  Receipt Date: 20181227
  Transmission Date: 20190205
  Serious: No
  Sender: FDA-Public Use
  Company Number: US-SA-2018SA283091

PATIENT
  Age: 63 Year
  Sex: Female

DRUGS (1)
  1. TERIFLUNOMIDE. [Suspect]
     Active Substance: TERIFLUNOMIDE
     Indication: MULTIPLE SCLEROSIS
     Dosage: 14 MG, QD
     Route: 048
     Dates: start: 20180719

REACTIONS (13)
  - Vomiting [Unknown]
  - Pollakiuria [Unknown]
  - Vulvovaginal dryness [Not Recovered/Not Resolved]
  - Neck pain [Unknown]
  - Condition aggravated [Not Recovered/Not Resolved]
  - Bladder prolapse [Not Recovered/Not Resolved]
  - Nausea [Unknown]
  - Rectocele [Not Recovered/Not Resolved]
  - Alopecia [Unknown]
  - Liver function test increased [Not Recovered/Not Resolved]
  - Dry skin [Unknown]
  - Urinary incontinence [Unknown]
  - Diarrhoea [Recovering/Resolving]

NARRATIVE: CASE EVENT DATE: 20181007
